FAERS Safety Report 8875537 (Version 1)
Quarter: 2012Q4

REPORT INFORMATION
  Report Type: 
  Country: US (occurrence: US)
  Receive Date: 20121030
  Receipt Date: 20121030
  Transmission Date: 20130627
  Serious: No
  Sender: FDA-Public Use
  Company Number: US-TEVA-367482USA

PATIENT
  Age: 24 Year
  Sex: Female
  Weight: 62.65 kg

DRUGS (3)
  1. PLAN B ONE-STEP [Suspect]
     Indication: POST COITAL CONTRACEPTION
     Dosage: 1.5 Milligram Daily;
     Route: 048
     Dates: start: 20121026, end: 20121026
  2. LOESTRIN 24 FE [Concomitant]
     Indication: CONTRACEPTION
  3. LOESTRIN 24 FE [Concomitant]
     Indication: MENSTRUAL CYCLE MANAGEMENT

REACTIONS (1)
  - Vomiting [Recovered/Resolved]
